FAERS Safety Report 5498494-6 (Version None)
Quarter: 2007Q4

REPORT INFORMATION
  Report Type: 
  Country: None (occurrence: None)
  Receive Date: 20071024
  Receipt Date: 20071024
  Transmission Date: 20080405
  Serious: Yes (Hospitalization)
  Sender: FDA-Public Use
  Company Number: None

PATIENT
  Sex: Female
  Weight: 61.6892 kg

DRUGS (8)
  1. ENBREL [Suspect]
  2. ARAVA [Concomitant]
  3. AZULFIDINE [Concomitant]
  4. ACTOS [Concomitant]
  5. LESCOL [Concomitant]
  6. HYDROCHLOROTHIAZIDE [Concomitant]
  7. ATENOLOL [Concomitant]
  8. CAPTOPRIL [Concomitant]

REACTIONS (3)
  - JOINT CONTRACTURE [None]
  - STAPHYLOCOCCAL INFECTION [None]
  - TENDON RUPTURE [None]
